FAERS Safety Report 5192368-6 (Version None)
Quarter: 2006Q4

REPORT INFORMATION
  Report Type: 
  Country: None (occurrence: None)
  Receive Date: 20061227
  Receipt Date: 20061218
  Transmission Date: 20070319
  Serious: Yes (Other)
  Sender: FDA-Public Use
  Company Number: CA-PFIZER INC-2006154449

PATIENT
  Age: 52 Year
  Sex: Female

DRUGS (4)
  1. LIPITOR [Suspect]
     Route: 048
  2. ATENOLOL [Concomitant]
     Route: 048
  3. HERBAL PREPARATION [Concomitant]
     Route: 048
  4. RANITIDINE [Concomitant]
     Route: 048

REACTIONS (3)
  - BLOOD TRIGLYCERIDES INCREASED [None]
  - HIGH DENSITY LIPOPROTEIN DECREASED [None]
  - LOW DENSITY LIPOPROTEIN INCREASED [None]
